FAERS Safety Report 7429565-2 (Version None)
Quarter: 2011Q2

REPORT INFORMATION
  Report Type: 
  Country: None (occurrence: None)
  Receive Date: 20110421
  Receipt Date: 20110413
  Transmission Date: 20111010
  Serious: Yes (Other)
  Sender: FDA-Public Use
  Company Number: A0922859A

PATIENT
  Sex: Female

DRUGS (4)
  1. ADVAIR HFA [Suspect]
     Indication: ASTHMA
     Dosage: 1PUFF TWICE PER DAY
     Route: 055
  2. PRILOSEC [Concomitant]
  3. BLOOD PRESSURE MEDICATION [Concomitant]
  4. ALBUTEROL INHALER [Concomitant]

REACTIONS (7)
  - CATARACT [None]
  - WHEEZING [None]
  - ASTHMA [None]
  - CARDIAC DISORDER [None]
  - DRUG INEFFECTIVE [None]
  - COUGH [None]
  - FATIGUE [None]
